FAERS Safety Report 5823179-3 (Version None)
Quarter: 2008Q3

REPORT INFORMATION
  Report Type: 
  Country: None (occurrence: None)
  Receive Date: 20080725
  Receipt Date: 20080720
  Transmission Date: 20090109
  Serious: Yes (Other)
  Sender: FDA-Public Use
  Company Number: PHEH2008US06558

PATIENT
  Sex: Female

DRUGS (3)
  1. FEMARA [Interacting]
     Dosage: UNK
     Dates: start: 20071101
  2. LITHIUM CARBONATE [Interacting]
     Indication: BIPOLAR DISORDER
  3. PROZAC [Suspect]
     Indication: BIPOLAR DISORDER

REACTIONS (2)
  - DRUG INTERACTION [None]
  - DRUG LEVEL DECREASED [None]
